APPROVED DRUG PRODUCT: MOXIFLOXACIN HYDROCHLORIDE
Active Ingredient: MOXIFLOXACIN HYDROCHLORIDE
Strength: EQ 0.5% BASE
Dosage Form/Route: SOLUTION/DROPS;OPHTHALMIC
Application: A212616 | Product #001 | TE Code: AT1
Applicant: UPSHER SMITH LABORATORIES LLC
Approved: Feb 10, 2021 | RLD: No | RS: No | Type: RX